FAERS Safety Report 12716801 (Version 2)
Quarter: 2017Q1

REPORT INFORMATION
  Report Type: Spontaneous
  Country: US (occurrence: US)
  Receive Date: 20160906
  Receipt Date: 20170208
  Transmission Date: 20170428
  Serious: No
  Sender: FDA-Public Use
  Company Number: US-AEGERION PHARMACEUTICAL INC.-AEGR002726

PATIENT
  Sex: Female
  Weight: 74.38 kg

DRUGS (1)
  1. MYALEPT [Suspect]
     Active Substance: METRELEPTIN
     Indication: CONGENITAL GENERALISED LIPODYSTROPHY
     Dosage: 5 MG, BID, Q 12 HOURS
     Route: 058
     Dates: start: 20150801

REACTIONS (3)
  - Fatigue [Unknown]
  - Blood glucose decreased [Recovering/Resolving]
  - Headache [Unknown]
